FAERS Safety Report 19682367 (Version 1)
Quarter: 2021Q3

REPORT INFORMATION
  Report Type: Report from Study
  Country: US (occurrence: US)
  Receive Date: 20210810
  Receipt Date: 20210810
  Transmission Date: 20211014
  Serious: Yes (Other)
  Sender: FDA-Public Use
  Company Number: US-SUNOVION-2017SUN005655

PATIENT
  Sex: Female

DRUGS (1)
  1. LATUDA [Suspect]
     Active Substance: LURASIDONE HYDROCHLORIDE
     Dosage: 20 MG
     Route: 048

REACTIONS (8)
  - Surgery [Unknown]
  - Paranoia [Unknown]
  - Loss of consciousness [Unknown]
  - Hepatic fibrosis [Unknown]
  - Illness [Unknown]
  - Cough [Unknown]
  - Anxiety [Unknown]
  - Insomnia [Unknown]
